FAERS Safety Report 4607876-3 (Version None)
Quarter: 2005Q1

REPORT INFORMATION
  Report Type: 
  Country: None (occurrence: None)
  Receive Date: 20050310
  Receipt Date: 20050301
  Transmission Date: 20050727
  Serious: Yes (Hospitalization)
  Sender: FDA-Public Use
  Company Number: 2005CG00235

PATIENT
  Age: 65 Year
  Sex: Male

DRUGS (12)
  1. TENORMIN [Suspect]
     Indication: ESSENTIAL HYPERTENSION
     Dosage: 50 MG BID PO
     Route: 048
     Dates: start: 20041201
  2. ATACAND [Suspect]
     Indication: ESSENTIAL HYPERTENSION
     Dosage: 8 MG QD PO
     Route: 048
     Dates: start: 20041201, end: 20050113
  3. NICARDIPINE HCL [Suspect]
     Indication: ESSENTIAL HYPERTENSION
     Dosage: 50 MG TID PO
     Route: 048
     Dates: start: 20041201
  4. EUPRESSYL [Suspect]
     Indication: ESSENTIAL HYPERTENSION
     Dosage: 60 MG TID PO
     Route: 048
     Dates: start: 20041201
  5. OMEPRAZOLE [Concomitant]
  6. FONZYLANE [Concomitant]
  7. PERMIXON [Concomitant]
  8. ZOCOR [Concomitant]
  9. DI-ANTALVIC [Concomitant]
  10. CORVASAL [Concomitant]
  11. DILTIAZEM HCL [Concomitant]
  12. DIURETIC [Concomitant]

REACTIONS (9)
  - AORTIC DILATATION [None]
  - AORTIC DISSECTION [None]
  - AORTIC EMBOLUS [None]
  - ASTHENIA [None]
  - BLOOD CREATININE INCREASED [None]
  - BLOOD UREA INCREASED [None]
  - DRUG INTERACTION [None]
  - HYPERTENSION [None]
  - HYPOTENSION [None]
